FAERS Safety Report 10098655 (Version 1)
Quarter: 2014Q2

REPORT INFORMATION
  Report Type: Spontaneous
  Country: GB (occurrence: None)
  Receive Date: 20140421
  Receipt Date: 20140421
  Transmission Date: 20141212
  Serious: Yes (Hospitalization)
  Sender: FDA-Public Use
  Company Number: 2014100612

PATIENT
  Age: 79 Year
  Sex: Female
  Weight: 54 kg

DRUGS (1)
  1. FRAGMIN [Suspect]
     Indication: DEEP VEIN THROMBOSIS
     Dates: start: 20140118, end: 20140209

REACTIONS (9)
  - Skin irritation [None]
  - Rash erythematous [None]
  - Skin burning sensation [None]
  - Pain [None]
  - Drug administration error [None]
  - Vasodilatation [None]
  - Hypersensitivity [None]
  - Injection site bruising [None]
  - Drug administered at inappropriate site [None]
